FAERS Safety Report 25194108 (Version 1)
Quarter: 2025Q2

REPORT INFORMATION
  Report Type: Spontaneous
  Country: GB (occurrence: GB)
  Receive Date: 20250414
  Receipt Date: 20250414
  Transmission Date: 20250716
  Serious: Yes (Other)
  Sender: MYLAN
  Company Number: None

PATIENT
  Age: 18 Year
  Sex: Female
  Weight: 53 kg

DRUGS (4)
  1. SERTRALINE [Suspect]
     Active Substance: SERTRALINE HYDROCHLORIDE
     Indication: Depression
     Dosage: 50 MILLIGRAM, AM ONCE PER DAY IN THE MORNING)
     Dates: start: 20241117, end: 20250212
  2. SERTRALINE [Suspect]
     Active Substance: SERTRALINE HYDROCHLORIDE
     Dosage: 50 MILLIGRAM, AM ONCE PER DAY IN THE MORNING)
     Route: 065
     Dates: start: 20241117, end: 20250212
  3. SERTRALINE [Suspect]
     Active Substance: SERTRALINE HYDROCHLORIDE
     Dosage: 50 MILLIGRAM, AM ONCE PER DAY IN THE MORNING)
     Route: 065
     Dates: start: 20241117, end: 20250212
  4. SERTRALINE [Suspect]
     Active Substance: SERTRALINE HYDROCHLORIDE
     Dosage: 50 MILLIGRAM, AM ONCE PER DAY IN THE MORNING)
     Dates: start: 20241117, end: 20250212

REACTIONS (2)
  - Brain fog [Recovered/Resolved with Sequelae]
  - Dissociation [Recovered/Resolved with Sequelae]

NARRATIVE: CASE EVENT DATE: 20241207
